FAERS Safety Report 7790080-8 (Version None)
Quarter: 2011Q3

REPORT INFORMATION
  Report Type: 
  Country: None (occurrence: None)
  Receive Date: 20110930
  Receipt Date: 20110210
  Transmission Date: 20111222
  Serious: No
  Sender: FDA-Public Use
  Company Number: US-ASTRAZENECA-2011SE07952

PATIENT
  Age: 49 Year
  Sex: Female
  Weight: 59.9 kg

DRUGS (5)
  1. ARIMIDEX [Suspect]
     Indication: BREAST CANCER
     Route: 048
  2. ZOLOFT [Concomitant]
     Indication: HOT FLUSH
  3. MOBIC [Concomitant]
     Indication: ANALGESIC INTERVENTION SUPPORTIVE THERAPY
  4. ZOLOFT [Concomitant]
     Indication: ANXIETY
  5. TRAZODONE HCL [Concomitant]
     Indication: SLEEP DISORDER

REACTIONS (3)
  - ANXIETY [None]
  - HOT FLUSH [None]
  - TRIGGER FINGER [None]
